FAERS Safety Report 8149008 (Version 5)
Quarter: 2013Q3

REPORT INFORMATION
  Report Type: Spontaneous
  Country: US (occurrence: US)
  Receive Date: 20110922
  Receipt Date: 20130726
  Transmission Date: 20140515
  Serious: Yes (Other)
  Sender: FDA-Public Use
  Company Number: US-ASTRAZENECA-2011SE12493

PATIENT
  Age: 41 Year
  Sex: Male
  Weight: 51.2 kg

DRUGS (6)
  1. SEROQUEL [Suspect]
     Route: 048
     Dates: start: 20020130
  2. SEROQUEL [Suspect]
     Route: 048
     Dates: start: 200207
  3. SEROQUEL [Suspect]
     Route: 048
     Dates: start: 20020923
  4. PROTONIX [Concomitant]
     Dates: start: 200707
  5. ZOLOFT [Concomitant]
     Dates: start: 20020130
  6. ZOLOFT [Concomitant]
     Dates: start: 200207

REACTIONS (3)
  - Diabetic coma [Unknown]
  - Pancreatitis [Unknown]
  - Type 2 diabetes mellitus [Unknown]
